FAERS Safety Report 7105134-9 (Version None)
Quarter: 2010Q4

REPORT INFORMATION
  Report Type: 
  Country: None (occurrence: None)
  Receive Date: 20101116
  Receipt Date: 20101111
  Transmission Date: 20110411
  Serious: Yes (Death, Hospitalization)
  Sender: FDA-Public Use
  Company Number: US-EISAI INC.-E7867-00119-SPO-US

PATIENT
  Age: 51 Year
  Sex: Female

DRUGS (1)
  1. GLIADEL [Suspect]
     Indication: GLIOSARCOMA
     Dosage: UNKNOWN
     Route: 018

REACTIONS (2)
  - METASTASES TO LUNG [None]
  - PLEURAL EFFUSION [None]
